FAERS Safety Report 5749560-9 (Version None)
Quarter: 2008Q2

REPORT INFORMATION
  Report Type: 
  Country: None (occurrence: None)
  Receive Date: 20080522
  Receipt Date: 20080522
  Transmission Date: 20081010
  Serious: Yes (Hospitalization)
  Sender: FDA-Public Use
  Company Number: None

PATIENT
  Age: 74 Year
  Sex: Male
  Weight: 63.5036 kg

DRUGS (1)
  1. GEMCITABINE [Suspect]

REACTIONS (1)
  - ISCHAEMIC STROKE [None]
